FAERS Safety Report 5674056-2 (Version None)
Quarter: 2008Q1

REPORT INFORMATION
  Report Type: 
  Country: None (occurrence: None)
  Receive Date: 20080317
  Receipt Date: 20080304
  Transmission Date: 20080703
  Serious: Yes (Hospitalization)
  Sender: FDA-Public Use
  Company Number: A-JP2008-19336

PATIENT
  Age: 4 Year
  Sex: Female

DRUGS (15)
  1. TRACLEER [Suspect]
     Indication: PULMONARY HYPERTENSION
     Dosage: 8 MG, BID, ORAL; 4 MG, BID, ORAL; 5 MG, BID, ORAL; 6 MG, BID, ORAL; 7 MG, BID, ORAL;
     Route: 048
     Dates: start: 20060710, end: 20060725
  2. TRACLEER [Suspect]
     Indication: PULMONARY HYPERTENSION
     Dosage: 8 MG, BID, ORAL; 4 MG, BID, ORAL; 5 MG, BID, ORAL; 6 MG, BID, ORAL; 7 MG, BID, ORAL;
     Route: 048
     Dates: start: 20060726, end: 20060808
  3. TRACLEER [Suspect]
     Indication: PULMONARY HYPERTENSION
     Dosage: 8 MG, BID, ORAL; 4 MG, BID, ORAL; 5 MG, BID, ORAL; 6 MG, BID, ORAL; 7 MG, BID, ORAL;
     Route: 048
     Dates: start: 20060809, end: 20061019
  4. TRACLEER [Suspect]
     Indication: PULMONARY HYPERTENSION
     Dosage: 8 MG, BID, ORAL; 4 MG, BID, ORAL; 5 MG, BID, ORAL; 6 MG, BID, ORAL; 7 MG, BID, ORAL;
     Route: 048
     Dates: start: 20061020, end: 20061107
  5. TRACLEER [Suspect]
     Indication: PULMONARY HYPERTENSION
     Dosage: 8 MG, BID, ORAL; 4 MG, BID, ORAL; 5 MG, BID, ORAL; 6 MG, BID, ORAL; 7 MG, BID, ORAL;
     Route: 048
     Dates: start: 20061108, end: 20080128
  6. BERAPROST SODIUM (BERAPROST SODIUM) [Concomitant]
  7. THYRADIN (THYROID) [Concomitant]
  8. SULFAMETHOXAZOLE W/TRIMETHOPRIM (SULFAMETHOXAZOLE, TRIMETHOPRIM) [Concomitant]
  9. ERYTHROMYCIN (ERYTHROMYCIN ETHYLSUCCINATE) [Concomitant]
  10. FUROSEMIDE [Concomitant]
  11. SPIRONOLACTONE [Concomitant]
  12. CALCIUM LACTATE (CALCIUM LACTATE) [Concomitant]
  13. MYA-BM (CLOSTRIDIUM BUTYRICUM) [Concomitant]
  14. DENOPAMINE (DENOPAMINE) [Concomitant]
  15. OXYGEN (OXYGEN) [Concomitant]

REACTIONS (1)
  - ILEUS PARALYTIC [None]
